FAERS Safety Report 5166472-2 (Version None)
Quarter: 2006Q4

REPORT INFORMATION
  Report Type: 
  Country: None (occurrence: None)
  Receive Date: 20061130
  Receipt Date: 20061130
  Transmission Date: 20070319
  Serious: Yes (Death)
  Sender: FDA-Public Use
  Company Number: None

PATIENT
  Age: 29 Year
  Sex: Male

DRUGS (1)
  1. TENOFOVIR [Suspect]
     Indication: HIV INFECTION
     Dosage: 300 MG DAILY PO
     Route: 048
     Dates: start: 20060805, end: 20060808

REACTIONS (4)
  - FANCONI SYNDROME [None]
  - METABOLIC ACIDOSIS [None]
  - NEPHRITIC SYNDROME [None]
  - RENAL FAILURE CHRONIC [None]
